FAERS Safety Report 7626446-6 (Version None)
Quarter: 2011Q3

REPORT INFORMATION
  Report Type: 
  Country: None (occurrence: None)
  Receive Date: 20110721
  Receipt Date: 20110718
  Transmission Date: 20111222
  Serious: Yes (Hospitalization)
  Sender: FDA-Public Use
  Company Number: FR-PFIZER INC-2011161591

PATIENT
  Age: 72 Year
  Sex: Male

DRUGS (8)
  1. IMMUNE GLOBULIN (HUMAN) [Suspect]
     Dosage: UNK
     Route: 041
  2. NICARDIPINE HCL [Suspect]
     Dosage: 2 MG, EVERY HOUR
     Route: 042
     Dates: start: 20110519, end: 20110523
  3. IMMUNE GLOBULIN (HUMAN) [Suspect]
     Dosage: UNK
     Route: 041
  4. SOLU-MEDROL [Suspect]
     Dosage: 20 MG, 2X/DAY
     Route: 042
     Dates: start: 20110518, end: 20110520
  5. IMMUNE GLOBULIN (HUMAN) [Suspect]
     Indication: IDIOPATHIC THROMBOCYTOPENIC PURPURA
     Dosage: 5G
     Route: 041
     Dates: start: 20110518
  6. IMMUNE GLOBULIN (HUMAN) [Suspect]
     Dosage: UNK
     Route: 041
     Dates: end: 20110518
  7. IMMUNE GLOBULIN (HUMAN) [Suspect]
     Dosage: 80 G
     Route: 041
     Dates: start: 20110520, end: 20110520
  8. IMMUNE GLOBULIN (HUMAN) [Suspect]
     Dosage: 5G
     Route: 041

REACTIONS (2)
  - HYPONATRAEMIA [None]
  - RENAL FAILURE ACUTE [None]
